FAERS Safety Report 18947420 (Version 3)
Quarter: 2021Q1

REPORT INFORMATION
  Report Type: Spontaneous
  Country: JP (occurrence: JP)
  Receive Date: 20210226
  Receipt Date: 20210326
  Transmission Date: 20210420
  Serious: Yes (Hospitalization)
  Sender: FDA-Public Use
  Company Number: JP-FERRINGPH-2021FE01098

PATIENT
  Age: 65 Year
  Sex: Female

DRUGS (3)
  1. CORTRIL [Concomitant]
     Active Substance: HYDROCORTISONE
  2. DESMOPRESSIN KYOWA [Suspect]
     Active Substance: DESMOPRESSIN
     Indication: DIABETES INSIPIDUS
     Route: 065
  3. MINIRINMELT [Suspect]
     Active Substance: DESMOPRESSIN ACETATE
     Indication: DIABETES INSIPIDUS
     Dosage: 60 UG
     Route: 065
     Dates: start: 20210210

REACTIONS (4)
  - Femur fracture [Recovering/Resolving]
  - Out of specification product use [Unknown]
  - Blood sodium increased [Unknown]
  - Recalled product administered [Unknown]

NARRATIVE: CASE EVENT DATE: 20210210
